FAERS Safety Report 7597373-8 (Version None)
Quarter: 2011Q3

REPORT INFORMATION
  Report Type: 
  Country: None (occurrence: None)
  Receive Date: 20110708
  Receipt Date: 20110629
  Transmission Date: 20111222
  Serious: Yes (Other)
  Sender: FDA-Public Use
  Company Number: IL-ALLERGAN-1109016US

PATIENT
  Age: 81 Year
  Sex: Male

DRUGS (5)
  1. FLUOROMETHOLONE [Suspect]
     Indication: PRODUCT USED FOR UNKNOWN INDICATION
     Dosage: UNK
  2. DEXAMETHASONE [Suspect]
     Dosage: BID
     Route: 061
  3. DEXAMETHASONE [Suspect]
     Dosage: TID
     Route: 061
  4. BETA BLOCKING AGENTS [Concomitant]
     Indication: PRODUCT USED FOR UNKNOWN INDICATION
  5. DEXAMETHASONE [Suspect]
     Indication: PRODUCT USED FOR UNKNOWN INDICATION
     Dosage: QID
     Route: 061

REACTIONS (3)
  - WOUND DEHISCENCE [None]
  - ENDOPHTHALMITIS [None]
  - CORNEAL INFILTRATES [None]
